FAERS Safety Report 8529521-7 (Version None)
Quarter: 2012Q3

REPORT INFORMATION
  Report Type: 
  Country: None (occurrence: None)
  Receive Date: 20120723
  Receipt Date: 20120713
  Transmission Date: 20120928
  Serious: Yes (Hospitalization)
  Sender: FDA-Public Use
  Company Number: US-JNJFOC-20120707524

PATIENT
  Age: 21 Year
  Sex: Male

DRUGS (2)
  1. REMICADE [Suspect]
     Indication: COLITIS ULCERATIVE
     Route: 042
     Dates: start: 20120712, end: 20120712
  2. REMICADE [Suspect]
     Route: 042
     Dates: start: 20120625

REACTIONS (5)
  - INFUSION RELATED REACTION [None]
  - HYPERHIDROSIS [None]
  - TREMOR [None]
  - HEADACHE [None]
  - NASOPHARYNGITIS [None]
